FAERS Safety Report 13450633 (Version 1)
Quarter: 2017Q2

REPORT INFORMATION
  Report Type: Spontaneous
  Country: US (occurrence: US)
  Receive Date: 20170418
  Receipt Date: 20170418
  Transmission Date: 20170830
  Serious: No
  Sender: FDA-Public Use
  Company Number: US-ENDO PHARMACEUTICALS INC-2016-004156

PATIENT
  Sex: Female

DRUGS (5)
  1. HYDROCORTISONE CREAM .025 [Suspect]
     Active Substance: HYDROCORTISONE
     Indication: SKIN REACTION
     Route: 065
  2. HYDROCORTISONE CREAM .025 [Suspect]
     Active Substance: HYDROCORTISONE
     Indication: SKIN DISORDER
  3. HYDROCORTISONE CREAM .025 [Suspect]
     Active Substance: HYDROCORTISONE
     Indication: ERYTHEMA
  4. HYDROCORTISONE CREAM .025 [Suspect]
     Active Substance: HYDROCORTISONE
     Indication: PRURITUS
  5. HYDROCORTISONE CREAM .025 [Suspect]
     Active Substance: HYDROCORTISONE
     Indication: LOCAL SWELLING

REACTIONS (6)
  - Erythema [Unknown]
  - Pruritus [Unknown]
  - Condition aggravated [Unknown]
  - Skin disorder [Unknown]
  - Local swelling [Unknown]
  - Skin reaction [Unknown]
